FAERS Safety Report 8417922-7 (Version None)
Quarter: 2012Q2

REPORT INFORMATION
  Report Type: 
  Country: None (occurrence: None)
  Receive Date: 20120601
  Receipt Date: 20120601
  Transmission Date: 20120825
  Serious: Yes (Other)
  Sender: FDA-Public Use
  Company Number: None

PATIENT
  Sex: Female
  Weight: 70.7611 kg

DRUGS (1)
  1. ALENDRONATE SODIUM [Suspect]
     Indication: BONE DENSITY ABNORMAL
     Dosage: 1 PER WEEK ORAL
     Route: 048
     Dates: start: 20120201, end: 20120301

REACTIONS (15)
  - HYPOAESTHESIA [None]
  - ARTHRALGIA [None]
  - MYALGIA [None]
  - ERYTHEMA [None]
  - MUSCLE SPASMS [None]
  - SKIN DISCOLOURATION [None]
  - BONE PAIN [None]
  - PERIPHERAL COLDNESS [None]
  - CONSTIPATION [None]
  - DIZZINESS [None]
  - SKIN EXFOLIATION [None]
  - SKIN BURNING SENSATION [None]
  - PARAESTHESIA [None]
  - RASH [None]
  - GROIN PAIN [None]
